FAERS Safety Report 9952025 (Version 1)
Quarter: 2014Q1

REPORT INFORMATION
  Report Type: Report from Study
  Country: US (occurrence: US)
  Receive Date: 20140304
  Receipt Date: 20140304
  Transmission Date: 20141002
  Serious: No
  Sender: FDA-Public Use
  Company Number: US-ABBVIE-13P-163-1071132-00

PATIENT
  Age: 35 Year
  Sex: Female

DRUGS (8)
  1. HUMIRA [Suspect]
     Indication: CROHN^S DISEASE
     Dates: start: 20130228
  2. XYREM [Concomitant]
     Indication: PRODUCT USED FOR UNKNOWN INDICATION
     Dosage: 500MG/ML/ORAL SUSPENSION
  3. RITALIN [Concomitant]
     Indication: NARCOLEPSY
     Dosage: UP TO 6 TIMES A DAY AS NEEDED
  4. GEODON [Concomitant]
     Indication: BIPOLAR DISORDER
     Dosage: DAILY
  5. EFFEXOR [Concomitant]
     Indication: PANIC DISORDER
     Dosage: DAILY
  6. SYNTHROID [Concomitant]
     Indication: HYPOTHYROIDISM
     Dosage: DAILY
  7. ASACOL [Concomitant]
     Indication: CROHN^S DISEASE
  8. NUVIGIL [Concomitant]
     Indication: NARCOLEPSY
     Dosage: DAILY

REACTIONS (8)
  - Feeling jittery [Not Recovered/Not Resolved]
  - Injection site pain [Not Recovered/Not Resolved]
  - Injection site bruising [Unknown]
  - Injection site pain [Not Recovered/Not Resolved]
  - Rash papular [Not Recovered/Not Resolved]
  - Cold sweat [Not Recovered/Not Resolved]
  - Unevaluable event [Not Recovered/Not Resolved]
  - Pain [Not Recovered/Not Resolved]
